FAERS Safety Report 17709833 (Version 4)
Quarter: 2020Q2

REPORT INFORMATION
  Report Type: Report from Study
  Country: US (occurrence: US)
  Receive Date: 20200427
  Receipt Date: 20200529
  Transmission Date: 20200714
  Serious: Yes (Hospitalization, Other)
  Sender: FDA-Public Use
  Company Number: US-BIOGEN-2020BI00866034

PATIENT
  Age: 37 Year
  Sex: Male

DRUGS (1)
  1. SPINRAZA [Suspect]
     Active Substance: NUSINERSEN
     Indication: SPINAL MUSCULAR ATROPHY
     Route: 037
     Dates: start: 20191018

REACTIONS (16)
  - Musculoskeletal stiffness [Unknown]
  - Meningitis [Not Recovered/Not Resolved]
  - CSF glucose decreased [Unknown]
  - Pain in extremity [Unknown]
  - CSF red blood cell count positive [Unknown]
  - CSF white blood cell count increased [Unknown]
  - Urinary retention [Unknown]
  - Blood potassium decreased [Unknown]
  - Respiratory arrest [Recovered/Resolved]
  - CSF protein increased [Unknown]
  - CSF test abnormal [Unknown]
  - Dyspnoea [Recovered/Resolved]
  - Rash [Recovered/Resolved]
  - Pyrexia [Unknown]
  - Back pain [Unknown]
  - Headache [Unknown]

NARRATIVE: CASE EVENT DATE: 202004
